FAERS Safety Report 24430890 (Version 1)
Quarter: 2024Q4

REPORT INFORMATION
  Report Type: Spontaneous
  Country: DE (occurrence: DE)
  Receive Date: 20241014
  Receipt Date: 20241014
  Transmission Date: 20250115
  Serious: Yes (Other)
  Sender: CELLTRION
  Company Number: DE-ROCHE-3486545

PATIENT

DRUGS (3)
  1. HERZUMA [Suspect]
     Active Substance: TRASTUZUMAB-PKRB
     Indication: Breast cancer
     Dosage: 300 MG (LAST DOSE: 300MG ON 04/AUG/2023)
     Route: 042
     Dates: start: 20191031
  2. HERZUMA [Suspect]
     Active Substance: TRASTUZUMAB-PKRB
     Dosage: 400 MG (ON 04/AUG/2023 WAS HER DATE OF LAST APPLICATION PRIOR EVENT AND DOSE WAS 300 MG PER CYCLE)
     Route: 042
     Dates: start: 20210709
  3. PERJETA [Suspect]
     Active Substance: PERTUZUMAB
     Indication: Breast cancer
     Dosage: 420 MG (ON 04/AUG/2023 WAS HER DATE OF LAST APPLICATION PRIOR EVENT)
     Route: 065
     Dates: start: 20191031, end: 20230825

REACTIONS (1)
  - Polyneuropathy [Not Recovered/Not Resolved]

NARRATIVE: CASE EVENT DATE: 20230825
